FAERS Safety Report 9052441 (Version 2)
Quarter: 2013Q1

REPORT INFORMATION
  Report Type: Spontaneous
  Country: PT (occurrence: PT)
  Receive Date: 20130207
  Receipt Date: 20130211
  Transmission Date: 20140127
  Serious: Yes (Other)
  Sender: FDA-Public Use
  Company Number: PT-PFIZER INC-2013031956

PATIENT
  Age: 55 Year
  Sex: Female
  Weight: 63 kg

DRUGS (7)
  1. CAMPTO [Suspect]
     Indication: COLON CANCER
     Dosage: 300 MG, CYCLIC (BIWEEKLY)
     Route: 042
     Dates: start: 20130110, end: 20130110
  2. PALONOSETRON [Concomitant]
     Indication: COLON CANCER
  3. DEXAMETHASONE [Concomitant]
     Indication: COLON CANCER
  4. BEVACIZUMAB [Concomitant]
     Indication: COLON CANCER
  5. ATROPINE [Concomitant]
     Indication: COLON CANCER
  6. LEVOFOLINATE [Concomitant]
     Indication: COLON CANCER
  7. 5-FLUOROURACIL [Concomitant]
     Indication: COLON CANCER

REACTIONS (1)
  - Dysarthria [Recovered/Resolved]
